FAERS Safety Report 6867202-6 (Version None)
Quarter: 2010Q3

REPORT INFORMATION
  Report Type: 
  Country: None (occurrence: None)
  Receive Date: 20100722
  Receipt Date: 20100722
  Transmission Date: 20110219
  Serious: Yes (Death, Life-Threatening, Hospitalization)
  Sender: FDA-Public Use
  Company Number: B0665515A

PATIENT
  Sex: Female

DRUGS (7)
  1. ARIXTRA [Suspect]
     Dosage: 1INJ PER DAY
     Route: 058
     Dates: start: 20100420, end: 20100520
  2. KARDEGIC [Suspect]
     Indication: THROMBOSIS PROPHYLAXIS
     Dosage: 75MG PER DAY
     Route: 048
     Dates: end: 20100520
  3. SOTALOL [Concomitant]
     Dosage: 80MG PER DAY
     Route: 048
     Dates: end: 20100520
  4. PRETERAX [Concomitant]
     Dosage: 1UNIT PER DAY
     Route: 048
     Dates: end: 20100520
  5. NEXIUM [Concomitant]
     Dosage: 20MG PER DAY
     Route: 048
     Dates: end: 20100520
  6. ACUPAN [Concomitant]
     Indication: PAIN
     Dosage: 3TAB PER DAY
     Route: 048
     Dates: end: 20100520
  7. DOLIPRANE [Concomitant]
     Indication: PAIN
     Dosage: 3UNIT PER DAY
     Route: 048
     Dates: end: 20100520

REACTIONS (2)
  - CEREBROVASCULAR ACCIDENT [None]
  - CONTRAINDICATION TO MEDICAL TREATMENT [None]
